FAERS Safety Report 9672296 (Version 1)
Quarter: 2013Q4

REPORT INFORMATION
  Report Type: Spontaneous
  Country: IN (occurrence: None)
  Receive Date: 20131105
  Receipt Date: 20131105
  Transmission Date: 20140711
  Serious: Yes (Other)
  Sender: FDA-Public Use
  Company Number: FK201304826

PATIENT
  Age: 7 Year
  Sex: Male

DRUGS (2)
  1. CEFTRIAXON [Suspect]
     Indication: RESPIRATORY TRACT INFECTION
  2. AMPICILLIN [Suspect]
     Indication: RESPIRATORY TRACT INFECTION

REACTIONS (8)
  - Diarrhoea [None]
  - Vomiting [None]
  - Neutrophilia [None]
  - Dizziness [None]
  - Urticaria [None]
  - Pruritus generalised [None]
  - Drug hypersensitivity [None]
  - Rash generalised [None]
